FAERS Safety Report 12698734 (Version 6)
Quarter: 2016Q4

REPORT INFORMATION
  Report Type: Spontaneous
  Country: JP (occurrence: JP)
  Receive Date: 20160830
  Receipt Date: 20161116
  Transmission Date: 20170207
  Serious: Yes (Hospitalization, Other)
  Sender: FDA-Public Use
  Company Number: JP-GLAXOSMITHKLINE-JP2016JPN124576

PATIENT
  Age: 79 Year
  Sex: Male
  Weight: 57 kg

DRUGS (18)
  1. VALTREX [Suspect]
     Active Substance: VALACYCLOVIR HYDROCHLORIDE
     Indication: HERPES ZOSTER
     Dosage: 1000 MG, TID
     Route: 048
     Dates: start: 20160819, end: 20160824
  2. CLOPIDOGREL SULFATE [Concomitant]
     Active Substance: CLOPIDOGREL BISULFATE
     Dosage: UNK
  3. MOSAPRIDE CITRATE HYDRATE [Concomitant]
     Active Substance: MOSAPRIDE CITRATE DIHYDRATE
     Dosage: UNK
  4. AMLODIPINE [Concomitant]
     Active Substance: AMLODIPINE BESYLATE
     Dosage: UNK
  5. RISPERIDONE. [Concomitant]
     Active Substance: RISPERIDONE
     Dosage: UNK
  6. DAIKENCHUTO [Concomitant]
     Active Substance: HERBALS
     Dosage: UNK
  7. YOKUKANSAN [Concomitant]
     Active Substance: HERBALS
     Dosage: UNK
  8. SENNARIDE [Concomitant]
     Active Substance: SENNOSIDES A AND B
     Dosage: UNK
  9. BELSOMRA [Concomitant]
     Active Substance: SUVOREXANT
     Dosage: UNK
  10. CRESTOR [Concomitant]
     Active Substance: ROSUVASTATIN CALCIUM
     Dosage: UNK
  11. GLUFAST [Concomitant]
     Active Substance: MITIGLINIDE
     Dosage: UNK
  12. JANUVIA [Concomitant]
     Active Substance: SITAGLIPTIN PHOSPHATE
     Dosage: UNK
  13. DONEPEZIL HYDROCHLORIDE. [Concomitant]
     Active Substance: DONEPEZIL HYDROCHLORIDE
     Dosage: UNK
  14. NEXIUM [Concomitant]
     Active Substance: ESOMEPRAZOLE MAGNESIUM
     Dosage: UNK
  15. SODIUM CHLORIDE. [Concomitant]
     Active Substance: SODIUM CHLORIDE
     Dosage: UNK
  16. TIAPRIDE [Concomitant]
     Active Substance: TIAPRIDE
     Dosage: UNK
  17. REZALTAS [Concomitant]
     Active Substance: AZELNIDIPINE\OLMESARTAN MEDOXOMIL
     Dosage: UNK
  18. XYZAL [Concomitant]
     Active Substance: LEVOCETIRIZINE DIHYDROCHLORIDE
     Dosage: UNK

REACTIONS (8)
  - Acute kidney injury [Recovered/Resolved]
  - Screaming [Recovering/Resolving]
  - Toxic encephalopathy [Recovering/Resolving]
  - Depressed level of consciousness [Recovering/Resolving]
  - Altered state of consciousness [Recovering/Resolving]
  - Dehydration [Recovering/Resolving]
  - Renal impairment [Recovering/Resolving]
  - Unresponsive to stimuli [Recovering/Resolving]

NARRATIVE: CASE EVENT DATE: 201608
